FAERS Safety Report 20325759 (Version 1)
Quarter: 2022Q1

REPORT INFORMATION
  Report Type: Other
  Country: CA (occurrence: None)
  Receive Date: 20220112
  Receipt Date: 20220112
  Transmission Date: 20220423
  Serious: No
  Sender: FDA-Public Use
  Company Number: CA-ROCHE-2998227

PATIENT
  Age: 42 Year
  Sex: Female

DRUGS (6)
  1. OCREVUS [Suspect]
     Active Substance: OCRELIZUMAB
     Indication: Primary progressive multiple sclerosis
     Dosage: THEN 600 MG EVERY 6 MONTH
     Route: 042
     Dates: start: 20210128
  2. TYLENOL [Concomitant]
     Active Substance: ACETAMINOPHEN
  3. BUCKLEY^S MIXTURE (AMMONIUM) [Concomitant]
     Active Substance: AMMONIUM CARBONATE\CAMPHOR\HERBALS\MENTHOL\POTASSIUM BICARBONATE
  4. NEOCITRAN (CANADA) [Concomitant]
  5. VITAMIN C [Concomitant]
     Active Substance: ASCORBIC ACID
  6. ZINC [Concomitant]
     Active Substance: ZINC

REACTIONS (3)
  - Bone pain [Recovering/Resolving]
  - Myalgia [Recovering/Resolving]
  - SARS-CoV-2 test positive [Unknown]

NARRATIVE: CASE EVENT DATE: 20211230
